FAERS Safety Report 22932724 (Version 2)
Quarter: 2024Q2

REPORT INFORMATION
  Report Type: Report from Study
  Country: IT (occurrence: IT)
  Receive Date: 20230912
  Receipt Date: 20240425
  Transmission Date: 20240716
  Serious: Yes (Death, Other)
  Sender: FDA-Public Use
  Company Number: IT-ABBVIE-5401920

PATIENT
  Age: 67 Year
  Sex: Female
  Weight: 62 kg

DRUGS (3)
  1. VENETOCLAX [Suspect]
     Active Substance: VENETOCLAX
     Indication: Acute myeloid leukaemia
     Dosage: LAST DOSE ADMINISTERED: 400 MG/DAY
     Route: 048
     Dates: start: 20221010, end: 20221130
  2. ETOPOSIDE [Concomitant]
     Active Substance: ETOPOSIDE
     Indication: Salvage therapy
     Dosage: 100 MG
     Route: 042
     Dates: start: 20221207, end: 20221207
  3. DECITABINE [Suspect]
     Active Substance: DECITABINE
     Indication: Acute myeloid leukaemia
     Dosage: 20 MG/MQ FOR 5 DAYS
     Route: 065
     Dates: start: 20221010

REACTIONS (2)
  - Cardiac arrest [Fatal]
  - Sepsis [Unknown]

NARRATIVE: CASE EVENT DATE: 20221208
